FAERS Safety Report 12462210 (Version 2)
Quarter: 2016Q2

REPORT INFORMATION
  Report Type: Spontaneous
  Country: NL (occurrence: NL)
  Receive Date: 20160613
  Receipt Date: 20160622
  Transmission Date: 20160815
  Serious: Yes (Other)
  Sender: FDA-Public Use
  Company Number: NL-BAXTER-2016BAX030411

PATIENT
  Age: 46 Year
  Sex: Female
  Weight: 96 kg

DRUGS (5)
  1. TAMOXIFEN [Suspect]
     Active Substance: TAMOXIFEN
     Indication: BREAST CANCER METASTATIC
     Dosage: ONCE PER DAY ONE PIECE
     Route: 048
     Dates: start: 201410
  2. EPIRUBICINE INFUUS [Suspect]
     Active Substance: EPIRUBICIN
     Indication: BREAST CANCER
     Dosage: 3 COURSES, INFUSION, 6 TIMES CHEMOTHERAPY (3 TIMES FEC AND 3 TIMES TAXOTERE)
     Route: 042
     Dates: start: 201405, end: 201408
  3. ENDOXAN I.V., POEDER VOOR OPLOSSING VOOR INJECTIE 200, 500, 1000 MG [Suspect]
     Active Substance: CYCLOPHOSPHAMIDE
     Indication: BREAST CANCER
     Dosage: 3 COURSES, INTRAVENOUS INFUSION, 6 TIMES CHEMOTHERAPY (3 TIMES FEC AND 3 TIMES TAXOTERE)
     Route: 042
     Dates: start: 201405, end: 201408
  4. TAXOTERE [Suspect]
     Active Substance: DOCETAXEL
     Indication: BREAST CANCER
     Dosage: 3 COURSES, 6 TIMES CHEMOTHERAPY (3 TIMES FEC AND 3 TIMES TAXOTERE)
     Route: 042
     Dates: start: 201405, end: 201408
  5. FLUOROURACIL INFUUS [Suspect]
     Active Substance: FLUOROURACIL
     Indication: BREAST CANCER
     Dosage: 3 COURSES, INFUSION, 6 TIMES CHEMOTHERAPY (3 TIMES FEC AND 3 TIMES TAXOTERE)
     Route: 042
     Dates: start: 201405, end: 201408

REACTIONS (3)
  - Hair growth abnormal [Not Recovered/Not Resolved]
  - Alopecia [Unknown]
  - Breast cancer metastatic [Unknown]

NARRATIVE: CASE EVENT DATE: 201406
